FAERS Safety Report 9099638 (Version 2)
Quarter: 2013Q1

REPORT INFORMATION
  Report Type: Spontaneous
  Country: ES (occurrence: ES)
  Receive Date: 20130214
  Receipt Date: 20130307
  Transmission Date: 20140127
  Serious: Yes (Hospitalization)
  Sender: FDA-Public Use
  Company Number: ES-PFIZER INC-2013058694

PATIENT
  Age: 72 Year
  Sex: Male

DRUGS (9)
  1. ACOVIL [Suspect]
     Indication: PRODUCT USED FOR UNKNOWN INDICATION
     Dosage: 2.5 MG IN THE MORNING AND 5 MG AT NIGHT, 2X/DAY
     Route: 065
     Dates: start: 201111, end: 20120402
  2. EPLERENONE [Suspect]
     Indication: PRODUCT USED FOR UNKNOWN INDICATION
     Dosage: 25 MG, EVERY OTHER DAY
     Route: 065
     Dates: start: 201111, end: 20120402
  3. CARVEDILOL [Concomitant]
     Dosage: UNK
  4. ISOSORBIDE MONONITRATE [Concomitant]
     Dosage: UNK
  5. LORAZEPAM [Concomitant]
     Dosage: UNK
  6. ESCITALOPRAM [Concomitant]
     Dosage: UNK
  7. RIVASTIGMINE [Concomitant]
     Dosage: UNK
  8. FINASTERIDE [Concomitant]
     Dosage: UNK
  9. OMEPRAZOLE [Concomitant]
     Dosage: UNK

REACTIONS (2)
  - Insomnia [Recovered/Resolved]
  - Restlessness [Recovered/Resolved]
